FAERS Safety Report 4842684-X (Version None)
Quarter: 2005Q4

REPORT INFORMATION
  Report Type: 
  Country: None (occurrence: None)
  Receive Date: 20051129
  Receipt Date: 20051116
  Transmission Date: 20060501
  Serious: Yes (Hospitalization)
  Sender: FDA-Public Use
  Company Number: 219356

PATIENT
  Age: 69 Year
  Sex: Male
  Weight: 80.5 kg

DRUGS (3)
  1. RITUXAN [Suspect]
     Indication: NON-HODGKIN'S LYMPHOMA
     Dosage: 375 MG/M2, QD, INTRAVENOUS
     Route: 042
     Dates: start: 20040927, end: 20050214
  2. FLUDARABINE PHOSPHATE [Suspect]
     Indication: NON-HODGKIN'S LYMPHOMA
     Dosage: 25 MG/M2, QD, INTRAVENOUS
     Route: 042
     Dates: start: 20040927, end: 20050218
  3. LEVOFLOXACIN [Concomitant]

REACTIONS (17)
  - ALANINE AMINOTRANSFERASE INCREASED [None]
  - ALVEOLITIS ALLERGIC [None]
  - AMYLOIDOMA [None]
  - ASPARTATE AMINOTRANSFERASE INCREASED [None]
  - BLOOD LACTATE DEHYDROGENASE INCREASED [None]
  - CANDIDIASIS [None]
  - CD4 LYMPHOCYTES DECREASED [None]
  - CRYPTOGENIC ORGANIZING PNEUMONIA [None]
  - DRUG HYPERSENSITIVITY [None]
  - EOSINOPHILIC PNEUMONIA ACUTE [None]
  - GRANULOMA [None]
  - INTERSTITIAL LUNG DISEASE [None]
  - LEGIONELLA INFECTION [None]
  - PNEUMOCYSTIS JIROVECI PNEUMONIA [None]
  - PNEUMONIA PRIMARY ATYPICAL [None]
  - PULMONARY HAEMORRHAGE [None]
  - SPUTUM CULTURE POSITIVE [None]
